FAERS Safety Report 15565923 (Version 4)
Quarter: 2019Q1

REPORT INFORMATION
  Report Type: Spontaneous
  Country: JP (occurrence: JP)
  Receive Date: 20181030
  Receipt Date: 20190312
  Transmission Date: 20190417
  Serious: Yes (Other)
  Sender: FDA-Public Use
  Company Number: JP-GLAXOSMITHKLINE-JP2018JPN194361

PATIENT
  Age: 20 Year
  Sex: Male
  Weight: 61 kg

DRUGS (7)
  1. ALLOPURINOL. [Concomitant]
     Active Substance: ALLOPURINOL
     Dosage: UNK
  2. SAMSCA [Concomitant]
     Active Substance: TOLVAPTAN
     Dosage: UNK
  3. BIO-THREE [Concomitant]
     Active Substance: HERBALS
     Dosage: UNK
  4. OPSUMIT [Concomitant]
     Active Substance: MACITENTAN
     Indication: PULMONARY ARTERIAL HYPERTENSION
     Dosage: 10 MG, QD
  5. LUPRAC [Concomitant]
     Active Substance: TORSEMIDE
     Dosage: UNK
  6. FLOLAN [Suspect]
     Active Substance: EPOPROSTENOL SODIUM
     Indication: PULMONARY ARTERIAL HYPERTENSION
     Dosage: 103NG/KG/MIN, 24 HOURS
     Route: 042
     Dates: start: 20120521
  7. ADEMPAS [Concomitant]
     Active Substance: RIOCIGUAT
     Dosage: UNK

REACTIONS (3)
  - Haematochezia [Recovering/Resolving]
  - Colitis ulcerative [Recovering/Resolving]
  - Haemorrhage [Recovering/Resolving]

NARRATIVE: CASE EVENT DATE: 20180904
